FAERS Safety Report 16778812 (Version 1)
Quarter: 2019Q3

REPORT INFORMATION
  Report Type: Spontaneous
  Country: DE (occurrence: DE)
  Receive Date: 20190906
  Receipt Date: 20190906
  Transmission Date: 20191005
  Serious: Yes (Other)
  Sender: FDA-Public Use
  Company Number: DE-SUN PHARMACEUTICAL INDUSTRIES LTD-2019RR-219722

PATIENT
  Age: 7 Month
  Sex: Male
  Weight: 1.92 kg

DRUGS (11)
  1. LEVETIRACETAM. [Suspect]
     Active Substance: LEVETIRACETAM
     Dosage: 750 MG X2 (DAILY DOSE: 1500 MG) ()
     Route: 064
     Dates: start: 20141127
  2. LACOSAMIDE EP [Suspect]
     Active Substance: LACOSAMIDE
     Indication: EPILEPSY
     Dosage: 100 MG, ONCE DAILY (QD)
     Route: 064
     Dates: start: 2014, end: 20141215
  3. LEVETIRACETAM. [Suspect]
     Active Substance: LEVETIRACETAM
     Dosage: UNK, 4X/DAY (QID) 1000-1000-500-1000 ()
     Route: 064
     Dates: start: 20141216, end: 20150627
  4. LACOSAMIDE EP [Suspect]
     Active Substance: LACOSAMIDE
     Dosage: 100 MG, 2X/DAY (BID)
     Route: 064
     Dates: start: 20141127
  5. LACOSAMIDE EP [Suspect]
     Active Substance: LACOSAMIDE
     Dosage: 50 MG, 2X/DAY (BID) 50-0-50
     Route: 064
     Dates: start: 20141216, end: 20141218
  6. PREGABALIN. [Concomitant]
     Active Substance: PREGABALIN
     Dosage: TOTAL: 750  (150-300-300) ()
     Route: 064
  7. LEVETIRACETAM. [Suspect]
     Active Substance: LEVETIRACETAM
     Indication: EPILEPSY
     Dosage: 1500 MG, 2X/DAY (BID) (1500-0-1500)
     Route: 064
     Dates: start: 20141215, end: 20141215
  8. LEVETIRACETAM. [Suspect]
     Active Substance: LEVETIRACETAM
     Dosage: DOSE INCREASE ()
     Route: 064
     Dates: start: 2014, end: 2014
  9. PREGABALIN. [Concomitant]
     Active Substance: PREGABALIN
     Dosage: TOTAL: 750 (150-150-150-300) ()
     Route: 063
     Dates: start: 2015
  10. LEVETIRACETAM. [Suspect]
     Active Substance: LEVETIRACETAM
     Dosage: UNK ()
     Route: 063
     Dates: start: 2015
  11. PREGABALIN. [Concomitant]
     Active Substance: PREGABALIN
     Indication: PRODUCT USED FOR UNKNOWN INDICATION
     Dosage: TOTAL: 750 (150-150-150-300) ()
     Route: 064
     Dates: start: 20141216, end: 20150627

REACTIONS (5)
  - Exposure via breast milk [Unknown]
  - Low birth weight baby [Unknown]
  - Foetal exposure during pregnancy [Unknown]
  - Premature baby [Unknown]
  - Maternal exposure during pregnancy [Unknown]

NARRATIVE: CASE EVENT DATE: 20141127
